FAERS Safety Report 8151065-5 (Version None)
Quarter: 2012Q1

REPORT INFORMATION
  Report Type: 
  Country: None (occurrence: None)
  Receive Date: 20120220
  Receipt Date: 20120215
  Transmission Date: 20120608
  Serious: Yes (Disabling, Other)
  Sender: FDA-Public Use
  Company Number: US-MERCK-1201USA01698

PATIENT
  Age: 16 Year
  Sex: Female
  Weight: 52 kg

DRUGS (2)
  1. SINGULAIR [Suspect]
     Indication: HYPERSENSITIVITY
     Route: 048
     Dates: start: 20111128, end: 20120109
  2. FLONASE [Concomitant]
     Indication: HYPERSENSITIVITY
     Route: 065

REACTIONS (2)
  - DEPRESSION [None]
  - SELF INJURIOUS BEHAVIOUR [None]
